FAERS Safety Report 4634473-6 (Version None)
Quarter: 2005Q2

REPORT INFORMATION
  Report Type: 
  Country: None (occurrence: None)
  Receive Date: 20050413
  Receipt Date: 20050407
  Transmission Date: 20051028
  Serious: Yes (Hospitalization)
  Sender: FDA-Public Use
  Company Number: MY-MERCK-0504MYS00005

PATIENT
  Age: 59 Year
  Sex: Male

DRUGS (2)
  1. INVANZ [Suspect]
     Indication: ANTIBACTERIAL PROPHYLAXIS
     Route: 042
     Dates: start: 20050329, end: 20050329
  2. INVANZ [Suspect]
     Route: 042
     Dates: start: 20050330, end: 20050331

REACTIONS (2)
  - CELLULITIS [None]
  - PAIN [None]
